FAERS Safety Report 4956768-9 (Version None)
Quarter: 2006Q1

REPORT INFORMATION
  Report Type: 
  Country: None (occurrence: None)
  Receive Date: 20060329
  Receipt Date: 20050929
  Transmission Date: 20060701
  Serious: Yes (Hospitalization)
  Sender: FDA-Public Use
  Company Number: FR-ROCHE-419492

PATIENT
  Age: 76 Year
  Sex: Female

DRUGS (6)
  1. XELODA [Suspect]
     Route: 048
     Dates: start: 20050105, end: 20050927
  2. LYTOS [Suspect]
     Indication: BREAST CANCER
     Route: 048
     Dates: start: 20020501, end: 20030801
  3. AROMASINE [Suspect]
     Indication: BREAST CANCER
     Route: 048
     Dates: start: 20030801, end: 20031001
  4. ARIMIDEX [Suspect]
     Indication: BREAST CANCER
     Route: 048
     Dates: start: 20020501, end: 20030801
  5. NOLVADEX [Suspect]
     Indication: BREAST CANCER
     Route: 048
     Dates: start: 20031001, end: 20040901
  6. EPREX [Suspect]
     Dosage: DOSING REGIMEN REPORTED AS 40000 A WEEK.
     Route: 042
     Dates: start: 20050405, end: 20050927

REACTIONS (1)
  - ACUTE LEUKAEMIA [None]
